FAERS Safety Report 7594292-8 (Version None)
Quarter: 2011Q3

REPORT INFORMATION
  Report Type: 
  Country: None (occurrence: None)
  Receive Date: 20110706
  Receipt Date: 20110627
  Transmission Date: 20111222
  Serious: Yes (Hospitalization, Other)
  Sender: FDA-Public Use
  Company Number: ZA-ASTRAZENECA-2011SE37393

PATIENT
  Age: 13270 Day
  Sex: Female

DRUGS (6)
  1. SEROQUEL XR [Suspect]
     Indication: BIPOLAR DISORDER
     Route: 048
     Dates: start: 20101117, end: 20110615
  2. ZOLOFT [Concomitant]
     Indication: BIPOLAR DISORDER
     Route: 048
     Dates: start: 20090610
  3. ZOLOFT [Concomitant]
     Route: 048
     Dates: start: 20100818
  4. SEROQUEL XR [Suspect]
     Indication: DEPRESSION
     Route: 048
     Dates: start: 20101117, end: 20110615
  5. ZOLOFT [Concomitant]
     Route: 048
     Dates: start: 20101117
  6. SEROQUEL XR [Suspect]
     Indication: IRRITABILITY
     Route: 048
     Dates: start: 20101117, end: 20110615

REACTIONS (5)
  - PREMATURE SEPARATION OF PLACENTA [None]
  - WEIGHT INCREASED [None]
  - HAEMORRHAGE [None]
  - MATERNAL EXPOSURE DURING PREGNANCY [None]
  - CAESAREAN SECTION [None]
